FAERS Safety Report 8571052-2 (Version None)
Quarter: 2012Q3

REPORT INFORMATION
  Report Type: 
  Country: None (occurrence: None)
  Receive Date: 20120806
  Receipt Date: 20120731
  Transmission Date: 20120928
  Serious: Yes (Hospitalization)
  Sender: FDA-Public Use
  Company Number: US-ASTRAZENECA-2011SE32236

PATIENT
  Age: 49 Year
  Sex: Female

DRUGS (48)
  1. HYDROCODONE BITARTRATE [Concomitant]
     Indication: PAIN
     Dosage: 10 MG AND AS NEEDED
  2. ZOLPIDEM [Concomitant]
     Dates: start: 20100309
  3. METOPROLOL TARTRATE [Concomitant]
     Route: 048
     Dates: start: 20090914
  4. DIOVAN [Concomitant]
     Dates: start: 20090914
  5. BUTALBITAL [Concomitant]
     Dosage: PRN
     Dates: start: 20090914
  6. NEXIUM [Suspect]
     Route: 048
     Dates: start: 20100211
  7. HYDROCODONE BITARTRATE [Concomitant]
     Dates: start: 20100323
  8. HYDROCO/ACETAMIN [Concomitant]
     Indication: BACK PAIN
     Dosage: 10MG/325MG TO BE TAKEN EVERY 12 HOURS
     Route: 048
     Dates: start: 20091006
  9. PREVACID [Concomitant]
     Route: 048
     Dates: start: 20091017
  10. CITALOPRAM HYDROBROMIDE [Concomitant]
     Dosage: TAKE 1/2 TABLET EVERY DAY FOR ONE WEEK,THEN ONE TABLET EVERY DAY TAKE WITH FOOD
     Route: 048
     Dates: start: 20060721
  11. NEXIUM [Suspect]
     Route: 048
     Dates: start: 20091019
  12. HYDROCHLOROTHIAZDE TAB [Concomitant]
  13. HYDROCHLOROTHIAZDE TAB [Concomitant]
     Route: 048
     Dates: start: 20100211
  14. HYDROCODONE BITARTRATE [Concomitant]
     Dates: start: 20090914
  15. METHOCARBAMOL [Concomitant]
     Route: 048
     Dates: start: 20100211
  16. VYTORIN [Concomitant]
     Dosage: 10/20 MG
     Dates: start: 20090914
  17. SULAR [Concomitant]
     Route: 048
     Dates: start: 20060721
  18. NEXIUM [Suspect]
     Dosage: ONE CAPSULE EVERY DAY IN THE MORNING
     Route: 048
     Dates: start: 20060721
  19. AMITRIPTYLINE HCL [Concomitant]
     Dates: start: 20090914
  20. NEURONTIN [Concomitant]
     Route: 048
     Dates: start: 20100211
  21. PHENERGAN HCL [Concomitant]
     Route: 048
     Dates: start: 20100211
  22. PREVACID [Concomitant]
     Dates: start: 20090914
  23. CLONAZEPAM [Concomitant]
     Indication: ANXIETY
     Route: 048
     Dates: start: 20060605
  24. NEXIUM [Suspect]
     Indication: GASTROOESOPHAGEAL REFLUX DISEASE
     Route: 048
     Dates: start: 20010101, end: 20110101
  25. NEXIUM [Suspect]
     Dosage: EVERY DAY
     Route: 048
     Dates: start: 20030101
  26. HYDROCODONE BITARTRATE [Concomitant]
     Dosage: 10/325 MG ONE TA PO DAILY
     Route: 048
     Dates: start: 20100211
  27. EXFORGE [Concomitant]
     Dosage: 5/320 ONE TAB PER ORAL DAILY
     Route: 048
     Dates: start: 20100211
  28. HYDROCO/ACETAMIN [Concomitant]
     Dosage: ONE OR TWO TAB PER ORAL DAILY
     Route: 048
     Dates: start: 20100211
  29. NEXIUM [Suspect]
     Route: 048
     Dates: start: 20100226
  30. CRESTOR [Concomitant]
     Indication: BLOOD CHOLESTEROL INCREASED
  31. HYDROCO/ACETAMIN [Concomitant]
     Dosage: 10-325 MG
     Route: 048
     Dates: start: 20100325
  32. METOPROLOL TARTRATE [Concomitant]
     Route: 048
     Dates: start: 20100211
  33. SIMVASTATIN [Concomitant]
     Dosage: 10/20MG ONE TABLET PO DAILY
     Route: 048
     Dates: start: 20100211
  34. VAGIFEM [Concomitant]
     Dosage: INSERT ONE TABLET INTO VAGINA EVERY DAY FOR ONE WEEK THEN ONE TABLET TWO TIMES A WEEK
     Route: 067
     Dates: start: 20060815
  35. HYDROCHLOROTHIAZDE TAB [Concomitant]
     Indication: HYPERTENSION
     Route: 048
     Dates: start: 20060503
  36. OMEPRAZOLE CR [Concomitant]
     Dates: start: 20010101, end: 20110101
  37. METOPROLOL TARTRATE [Concomitant]
     Route: 048
     Dates: start: 20060721
  38. METOPROLOL TARTRATE [Concomitant]
     Route: 048
     Dates: start: 20100325
  39. NEURONTIN [Concomitant]
     Route: 048
     Dates: start: 20091002
  40. NITRIPTYLINE [Concomitant]
     Dates: start: 20100211
  41. ZOLPIDEM [Concomitant]
     Indication: SLEEP DISORDER
  42. AMITRIPTYLINE HCL [Concomitant]
     Indication: DEPRESSION
  43. SIMVASTATIN [Concomitant]
     Route: 048
     Dates: start: 20060721
  44. CYCLOBENZAPRINE [Concomitant]
     Route: 048
     Dates: end: 20060503
  45. CYCLOBENZAPRINE [Concomitant]
     Route: 065
     Dates: start: 20090914
  46. CYCLOBENZAPRINE [Concomitant]
     Route: 048
     Dates: start: 20090930
  47. NITROGLYCERIN [Concomitant]
     Dosage: 0.2MG PER HOUR PATCHES
     Dates: start: 20091001
  48. DURADRIN [Concomitant]
     Indication: HEADACHE
     Dosage: ONE CAPSULE THREE TIMES A DAY
     Route: 048
     Dates: start: 20060626

REACTIONS (7)
  - DEPRESSION [None]
  - ANKLE FRACTURE [None]
  - SCIATIC NERVE INJURY [None]
  - WALKING AID USER [None]
  - ARTHRITIS [None]
  - GLAUCOMA [None]
  - OSTEOPOROSIS [None]
